FAERS Safety Report 15035557 (Version 1)
Quarter: 2018Q2

REPORT INFORMATION
  Report Type: Spontaneous
  Country: US (occurrence: US)
  Receive Date: 20180620
  Receipt Date: 20180620
  Transmission Date: 20180711
  Serious: Yes (Hospitalization)
  Sender: FDA-Public Use
  Company Number: US-MYLANLABS-2018M1041935

PATIENT
  Age: 57 Year
  Sex: Female

DRUGS (1)
  1. LITHIUM. [Suspect]
     Active Substance: LITHIUM
     Indication: BIPOLAR DISORDER
     Dosage: INITIAL DOSE UNKNOWN; LATER THE DOSE WAS INCREASED
     Route: 065

REACTIONS (4)
  - Leukocytosis [Recovering/Resolving]
  - Toxicity to various agents [Recovering/Resolving]
  - Nephropathy toxic [Recovering/Resolving]
  - Confusional state [Recovering/Resolving]
